FAERS Safety Report 25581327 (Version 1)
Quarter: 2025Q3

REPORT INFORMATION
  Report Type: Spontaneous
  Country: US (occurrence: US)
  Receive Date: 20250718
  Receipt Date: 20250718
  Transmission Date: 20251020
  Serious: No
  Sender: NOVO NORDISK
  Company Number: US-NOVOPROD-1376181

PATIENT
  Age: 33 Year
  Sex: Female
  Weight: 196 kg

DRUGS (1)
  1. WEGOVY [Suspect]
     Active Substance: SEMAGLUTIDE
     Indication: Obesity
     Dosage: 1.7
     Route: 058
     Dates: start: 202405

REACTIONS (4)
  - Hypophagia [Unknown]
  - Food craving [Unknown]
  - Constipation [Not Recovered/Not Resolved]
  - Inappropriate schedule of product administration [Unknown]
